FAERS Safety Report 20237678 (Version 1)
Quarter: 2021Q4

REPORT INFORMATION
  Report Type: Spontaneous
  Country: US (occurrence: None)
  Receive Date: 20211227
  Receipt Date: 20211227
  Transmission Date: 20220304
  Serious: Yes (Hospitalization)
  Sender: FDA-Public Use
  Company Number: None

PATIENT
  Age: 81 Year
  Sex: Male

DRUGS (2)
  1. CAPECITABINE [Suspect]
     Active Substance: CAPECITABINE
     Dosage: FREQUENCY : TWICE A DAY;?
     Route: 048
     Dates: start: 20211005
  2. OXALIPLATIN [Suspect]
     Active Substance: OXALIPLATIN
     Dosage: FREQUENCY : ONCE.;?
     Route: 042
     Dates: start: 20211116, end: 20211116

REACTIONS (8)
  - Diarrhoea [None]
  - Hypophagia [None]
  - Asthenia [None]
  - Confusional state [None]
  - Dysarthria [None]
  - Delirium [None]
  - Malaise [None]
  - Dehydration [None]

NARRATIVE: CASE EVENT DATE: 20211201
